FAERS Safety Report 9249345 (Version 2)
Quarter: 2013Q2

REPORT INFORMATION
  Report Type: Spontaneous
  Country: IT (occurrence: IT)
  Receive Date: 20130423
  Receipt Date: 20130509
  Transmission Date: 20140414
  Serious: Yes (Hospitalization)
  Sender: FDA-Public Use
  Company Number: IT-BAYER-2013-049873

PATIENT
  Age: 86 Year
  Sex: Female

DRUGS (4)
  1. CARDIOASPIRIN [Suspect]
     Indication: MYOCARDIAL ISCHAEMIA
     Dosage: 100 MG, QD
     Route: 048
     Dates: start: 20100101, end: 20130214
  2. ISOPTIN [Concomitant]
     Indication: ATRIAL FIBRILLATION
     Dosage: DAILY DOSE 40 MG
     Route: 048
  3. ISOPTIN [Concomitant]
     Indication: ATRIAL FIBRILLATION
     Dosage: UNK
     Route: 042
  4. LANOXIN [Concomitant]
     Indication: ATRIAL FIBRILLATION
     Dosage: DAILY DOSE .062 MG
     Route: 048

REACTIONS (1)
  - Epistaxis [Recovered/Resolved]
